FAERS Safety Report 8838730 (Version 4)
Quarter: 2013Q4

REPORT INFORMATION
  Report Type: Spontaneous
  Country: US (occurrence: US)
  Receive Date: 20121012
  Receipt Date: 20131024
  Transmission Date: 20140711
  Serious: Yes (Hospitalization, Disabling, Other)
  Sender: FDA-Public Use
  Company Number: US-009507513-1210USA003124

PATIENT
  Sex: Female

DRUGS (4)
  1. FOSAMAX [Suspect]
     Indication: OSTEOPOROSIS
     Dosage: 70 MG, QW
     Route: 048
     Dates: start: 2000, end: 2010
  2. CALCIUM (UNSPECIFIED) (+) VITAMIN D (UNSPECIFIED) [Concomitant]
     Dosage: UNK
     Dates: start: 1970
  3. CALCIUM (UNSPECIFIED) [Concomitant]
     Indication: OSTEOPOROSIS
  4. VITAMIN D (UNSPECIFIED) [Concomitant]
     Indication: OSTEOPOROSIS

REACTIONS (30)
  - Femoral neck fracture [Unknown]
  - Surgery [Unknown]
  - Wrist fracture [Unknown]
  - Surgery [Unknown]
  - Femur fracture [Not Recovered/Not Resolved]
  - Surgery [Unknown]
  - Open reduction of fracture [Unknown]
  - Upper limb fracture [Unknown]
  - Facial bones fracture [Unknown]
  - Wrist fracture [Unknown]
  - Surgery [Unknown]
  - Surgery [Unknown]
  - Surgery [Unknown]
  - Femur fracture [Not Recovered/Not Resolved]
  - Femur fracture [Not Recovered/Not Resolved]
  - Osteoporosis [Not Recovered/Not Resolved]
  - Fall [Unknown]
  - Fall [Unknown]
  - Hypothyroidism [Unknown]
  - Clavicle fracture [Unknown]
  - Dementia [Unknown]
  - Depression [Unknown]
  - Anaemia postoperative [Recovered/Resolved]
  - Confusion postoperative [Unknown]
  - Urinary tract infection [Unknown]
  - Cataract [Unknown]
  - Anxiety [Unknown]
  - Fall [Unknown]
  - Arthropathy [Unknown]
  - Constipation [Unknown]
